FAERS Safety Report 17318386 (Version 1)
Quarter: 2020Q1

REPORT INFORMATION
  Report Type: Report from Study
  Country: ES (occurrence: ES)
  Receive Date: 20200124
  Receipt Date: 20200124
  Transmission Date: 20200409
  Serious: Yes (Hospitalization)
  Sender: FDA-Public Use
  Company Number: ES-JNJFOC-20200105511

PATIENT

DRUGS (3)
  1. CYCLOSPORIN [Interacting]
     Active Substance: CYCLOSPORINE
     Indication: INFECTION
     Route: 065
  2. TACROLIMUS. [Interacting]
     Active Substance: TACROLIMUS
     Indication: INFECTION
     Route: 065
  3. ITRACONAZOLE. [Suspect]
     Active Substance: ITRACONAZOLE
     Indication: INFECTION
     Route: 065

REACTIONS (2)
  - Post procedural infection [Unknown]
  - Drug interaction [Unknown]
